FAERS Safety Report 23847703 (Version 3)
Quarter: 2024Q2

REPORT INFORMATION
  Report Type: Spontaneous
  Country: US (occurrence: US)
  Receive Date: 20240513
  Receipt Date: 20240612
  Transmission Date: 20240716
  Serious: No
  Sender: FDA-Public Use
  Company Number: US-PFIZER INC-202400103413

PATIENT
  Age: 13 Year
  Sex: Male
  Weight: 57.5 kg

DRUGS (3)
  1. GENOTROPIN [Suspect]
     Active Substance: SOMATROPIN
     Indication: Growth hormone deficiency
     Dosage: SIX DAYS A WEEK
  2. METHYLPHENIDATE [Concomitant]
     Active Substance: METHYLPHENIDATE
     Indication: Attention deficit hyperactivity disorder
     Dosage: 27 MG, DAILY (EVERY MORNINGS)
  3. ANASTROZOLE [Concomitant]
     Active Substance: ANASTROZOLE
     Indication: Growth hormone deficiency
     Dosage: 1 MG, 1X/DAY

REACTIONS (3)
  - Device breakage [Unknown]
  - Device mechanical issue [Unknown]
  - Wrong technique in device usage process [Unknown]

NARRATIVE: CASE EVENT DATE: 20240506
